FAERS Safety Report 14477610 (Version 1)
Quarter: 2018Q1

REPORT INFORMATION
  Report Type: Report from Study
  Country: US (occurrence: US)
  Receive Date: 20180201
  Receipt Date: 20180201
  Transmission Date: 20180509
  Serious: No
  Sender: FDA-Public Use
  Company Number: US-EXELIXIS-CABO-17009461

PATIENT
  Age: 65 Year
  Sex: Female

DRUGS (10)
  1. OXYCODONE [Concomitant]
     Active Substance: OXYCODONE
  2. MELOXICAM. [Concomitant]
     Active Substance: MELOXICAM
  3. OMEPRAZOLE. [Concomitant]
     Active Substance: OMEPRAZOLE
  4. ESZOPICLONE. [Concomitant]
     Active Substance: ESZOPICLONE
  5. CABOMETYX [Suspect]
     Active Substance: CABOZANTINIB S-MALATE
     Indication: RENAL CANCER
     Dosage: 60 MG, QD
     Route: 048
     Dates: start: 20170315
  6. ALPRAZOLAM. [Concomitant]
     Active Substance: ALPRAZOLAM
  7. CELEBREX [Concomitant]
     Active Substance: CELECOXIB
  8. LORAZEPAM. [Concomitant]
     Active Substance: LORAZEPAM
  9. GABAPENTIN. [Concomitant]
     Active Substance: GABAPENTIN
  10. ZOLOFT [Concomitant]
     Active Substance: SERTRALINE HYDROCHLORIDE

REACTIONS (3)
  - Oral pain [Unknown]
  - Nausea [Unknown]
  - Dry skin [Unknown]

NARRATIVE: CASE EVENT DATE: 20170414
